FAERS Safety Report 19481185 (Version 17)
Quarter: 2024Q4

REPORT INFORMATION
  Report Type: Spontaneous
  Country: CA (occurrence: CA)
  Receive Date: 20210701
  Receipt Date: 20241128
  Transmission Date: 20250115
  Serious: Yes (Other)
  Sender: CELLTRION
  Company Number: CA-CELLTRION INC.-2021CA003617

PATIENT

DRUGS (22)
  1. INFLECTRA [Suspect]
     Active Substance: INFLIXIMAB-DYYB
     Indication: Crohn^s disease
     Dosage: 5 MG/KG, EVERY 8 WEEKS (OR 650 MG)
     Route: 041
     Dates: start: 20210226, end: 20210226
  2. INFLECTRA [Suspect]
     Active Substance: INFLIXIMAB-DYYB
     Dosage: 5 MG/KG, EVERY 8 WEEKS
     Route: 041
     Dates: start: 20210423
  3. INFLECTRA [Suspect]
     Active Substance: INFLIXIMAB-DYYB
     Dosage: 5 MG/KG, EVERY 8 WEEKS
     Route: 041
     Dates: start: 20210617, end: 20210617
  4. INFLECTRA [Suspect]
     Active Substance: INFLIXIMAB-DYYB
     Dosage: 5 MG/KG, EVERY 8 WEEKS
     Route: 041
     Dates: start: 20210813
  5. INFLECTRA [Suspect]
     Active Substance: INFLIXIMAB-DYYB
     Dosage: 5 MG/KG, EVERY 8 WEEKS
     Route: 041
     Dates: start: 20211008
  6. INFLECTRA [Suspect]
     Active Substance: INFLIXIMAB-DYYB
     Dosage: 5 MG/KG, EVERY 8 WEEKS (OR 650 MG)
     Route: 041
     Dates: start: 20211203
  7. INFLECTRA [Suspect]
     Active Substance: INFLIXIMAB-DYYB
     Dosage: 650 MG, EVERY 6 WEEKS
     Route: 042
     Dates: start: 20220114
  8. INFLECTRA [Suspect]
     Active Substance: INFLIXIMAB-DYYB
     Dosage: 650 MG, EVERY 6 WEEKS
     Route: 042
     Dates: start: 20220225
  9. INFLECTRA [Suspect]
     Active Substance: INFLIXIMAB-DYYB
     Dosage: 650 MG, EVERY 6 WEEKS
     Route: 042
     Dates: start: 20220705
  10. INFLECTRA [Suspect]
     Active Substance: INFLIXIMAB-DYYB
     Dosage: 650 MG, EVERY 6 WEEKS
     Route: 042
     Dates: start: 20220817
  11. INFLECTRA [Suspect]
     Active Substance: INFLIXIMAB-DYYB
     Dosage: 650 MG, EVERY 6 WEEKS
     Route: 042
     Dates: start: 20220929
  12. INFLECTRA [Suspect]
     Active Substance: INFLIXIMAB-DYYB
     Dosage: 650 MG, EVERY 6 WEEKS
     Route: 042
     Dates: start: 20221111
  13. INFLECTRA [Suspect]
     Active Substance: INFLIXIMAB-DYYB
     Dosage: 650 MG, AFTER 8 WEEKS (PRESCRIBED EVERY 6 WEEKS)
     Route: 042
     Dates: start: 20230804
  14. INFLECTRA [Suspect]
     Active Substance: INFLIXIMAB-DYYB
     Dosage: 650 MG, AFTER 8 WEEKS (PRESCRIBED EVERY 6 WEEKS)
     Route: 042
     Dates: start: 20230929
  15. INFLECTRA [Suspect]
     Active Substance: INFLIXIMAB-DYYB
     Dosage: 650 MG, AFTER 7 WEEKS AND 6 DAYS (PRESCRIBED EVERY 6 WEEKS)
     Route: 042
     Dates: start: 20231123
  16. INFLECTRA [Suspect]
     Active Substance: INFLIXIMAB-DYYB
     Dosage: 650 MG, AFTER 8 WEEKS (PRESCRIBED EVERY 6 WEEKS)
     Route: 042
     Dates: start: 20240118
  17. INFLECTRA [Suspect]
     Active Substance: INFLIXIMAB-DYYB
     Dosage: 650 MG, AFTER 8 WEEKS (PRESCRIBED EVERY 6 WEEKS)
     Route: 042
     Dates: start: 20240314
  18. INFLECTRA [Suspect]
     Active Substance: INFLIXIMAB-DYYB
     Dosage: 650 MG, AFTER 8 WEEKS (PRESCRIBED EVERY 6 WEEKS)
     Route: 042
     Dates: start: 20240509
  19. INFLECTRA [Suspect]
     Active Substance: INFLIXIMAB-DYYB
     Dosage: 650 MG, AFTER 8 WEEKS (PRESCRIBED EVERY 6 WEEKS)
     Route: 042
     Dates: start: 20240704
  20. INFLECTRA [Suspect]
     Active Substance: INFLIXIMAB-DYYB
     Dosage: 650 MG, EVERY 6 WEEKS
     Route: 042
     Dates: start: 20240816
  21. INFLECTRA [Suspect]
     Active Substance: INFLIXIMAB-DYYB
     Dosage: 650 MG, EVERY 6 WEEKS
     Route: 042
     Dates: start: 20240927
  22. INFLECTRA [Suspect]
     Active Substance: INFLIXIMAB-DYYB
     Dosage: 650 MG, 7 WEEKS AND 4 DAYS (650 MG, EVERY 6 WEEKS)
     Route: 042
     Dates: start: 20241119

REACTIONS (8)
  - Uveitis [Unknown]
  - Drug level decreased [Unknown]
  - Heart rate decreased [Unknown]
  - Condition aggravated [Recovering/Resolving]
  - Off label use [Unknown]
  - Off label use [Unknown]
  - Intentional product use issue [Unknown]
  - Inappropriate schedule of product administration [Unknown]

NARRATIVE: CASE EVENT DATE: 20210101
